APPROVED DRUG PRODUCT: LEVETIRACETAM
Active Ingredient: LEVETIRACETAM
Strength: 500MG
Dosage Form/Route: TABLET;ORAL
Application: A090843 | Product #002
Applicant: ACCORD HEALTHCARE INC
Approved: Feb 14, 2011 | RLD: No | RS: No | Type: DISCN